FAERS Safety Report 17388383 (Version 1)
Quarter: 2020Q1

REPORT INFORMATION
  Report Type: Spontaneous
  Country: US (occurrence: US)
  Receive Date: 20200207
  Receipt Date: 20200207
  Transmission Date: 20200409
  Serious: No
  Sender: FDA-Public Use
  Company Number: US-ALKERMES INC.-ALK-2020-000483

PATIENT
  Age: 24 Year
  Sex: Female

DRUGS (3)
  1. VIVITROL [Suspect]
     Active Substance: NALTREXONE
     Dosage: 380 MG, QMO
     Route: 030
     Dates: start: 201910, end: 201910
  2. VIVITROL [Suspect]
     Active Substance: NALTREXONE
     Indication: DRUG DEPENDENCE
     Dosage: 380 MG, QMO
     Route: 030
     Dates: start: 20190129
  3. VIVITROL [Suspect]
     Active Substance: NALTREXONE
     Dosage: 380 MG, QMO
     Route: 030
     Dates: start: 201908, end: 201908

REACTIONS (9)
  - Injection site pain [Recovered/Resolved]
  - Liver function test decreased [Not Recovered/Not Resolved]
  - Drug dependence [Recovered/Resolved]
  - Product administered at inappropriate site [Recovered/Resolved]
  - Injection site reaction [Recovering/Resolving]
  - Injection site bruising [Recovered/Resolved]
  - Nervousness [Not Recovered/Not Resolved]
  - Product dose omission [Recovered/Resolved]
  - Injection site mass [Recovering/Resolving]

NARRATIVE: CASE EVENT DATE: 201911
